APPROVED DRUG PRODUCT: NAPROXEN
Active Ingredient: NAPROXEN
Strength: 375MG
Dosage Form/Route: TABLET;ORAL
Application: A091305 | Product #002
Applicant: INVAGEN PHARMACEUTICALS INC
Approved: Aug 24, 2011 | RLD: No | RS: No | Type: DISCN